FAERS Safety Report 9052417 (Version 2)
Quarter: 2013Q2

REPORT INFORMATION
  Report Type: Spontaneous
  Country: US (occurrence: None)
  Receive Date: 20120525
  Receipt Date: 20120827
  Transmission Date: 20140414
  Serious: No
  Sender: FDA-Public Use
  Company Number: 350178

PATIENT
  Age: 65 Year
  Sex: Female

DRUGS (1)
  1. VICTOZA (LIRAGLUTIDE) SOLUTION FOR INJECTION, 6 MG/ML [Suspect]
     Indication: TYPE 2 DIABETES MELLITUS
     Route: 058

REACTIONS (1)
  - Injection site erythema [None]
